FAERS Safety Report 15243830 (Version 3)
Quarter: 2018Q4

REPORT INFORMATION
  Report Type: Spontaneous
  Country: US (occurrence: US)
  Receive Date: 20180806
  Receipt Date: 20181005
  Transmission Date: 20190204
  Serious: No
  Sender: FDA-Public Use
  Company Number: US-SA-2018SA209016

PATIENT
  Age: 62 Year
  Sex: Male
  Weight: 120 kg

DRUGS (11)
  1. TOUJEO [Suspect]
     Active Substance: INSULIN GLARGINE
     Indication: BLOOD GLUCOSE ABNORMAL
     Dosage: 70 IU, QD
     Route: 065
     Dates: start: 20180701, end: 20180731
  2. TOUJEO [Suspect]
     Active Substance: INSULIN GLARGINE
     Dosage: 30+40 UNITS
     Route: 065
  3. LISINOPRIL. [Concomitant]
     Active Substance: LISINOPRIL
     Dosage: 12.5 MG, QD
     Dates: start: 19850101
  4. TOUJEO [Suspect]
     Active Substance: INSULIN GLARGINE
     Dosage: 38+25 UNITS
     Route: 065
  5. ADDERALL [Concomitant]
     Active Substance: AMPHETAMINE ASPARTATE\AMPHETAMINE SULFATE\DEXTROAMPHETAMINE SACCHARATE\DEXTROAMPHETAMINE SULFATE
     Indication: ATTENTION DEFICIT/HYPERACTIVITY DISORDER
     Dosage: 20 MG
     Dates: start: 20020101
  6. SEROQUEL [Concomitant]
     Active Substance: QUETIAPINE FUMARATE
     Indication: ATTENTION DEFICIT/HYPERACTIVITY DISORDER
     Dosage: 50 MG
  7. LISINOPRIL. [Concomitant]
     Active Substance: LISINOPRIL
     Indication: HYPERTENSION
     Dosage: 20 MG, QD
     Dates: start: 19850101
  8. AMITRIPTILINA [AMITRIPTYLINE] [Concomitant]
     Dosage: 25 MG, TID
     Dates: start: 20160701
  9. METFORMIN [Concomitant]
     Active Substance: METFORMIN HYDROCHLORIDE
     Indication: DIABETES MELLITUS
     Dosage: 500 MG, BID
     Dates: start: 20160701
  10. EZETIMIBE. [Concomitant]
     Active Substance: EZETIMIBE
     Indication: BLOOD CHOLESTEROL
     Dosage: 10 MG, QD
     Dates: start: 20170701
  11. VENLAFAXIN [Concomitant]
     Active Substance: VENLAFAXINE HYDROCHLORIDE
     Indication: DEPRESSION
     Dosage: 37.5 MG

REACTIONS (3)
  - Blood glucose increased [Recovered/Resolved]
  - Drug ineffective [Unknown]
  - Blood glucose abnormal [Unknown]

NARRATIVE: CASE EVENT DATE: 20180701
